FAERS Safety Report 25860299 (Version 2)
Quarter: 2025Q4

REPORT INFORMATION
  Report Type: Report from Study
  Country: US (occurrence: US)
  Receive Date: 20250929
  Receipt Date: 20251015
  Transmission Date: 20260117
  Serious: Yes (Hospitalization)
  Sender: IPSEN BIOPHARMACEUTICALS, INC.
  Company Number: US-IPSEN Group, Research and Development-2025-08786

PATIENT
  Age: 78 Year
  Sex: Female

DRUGS (1)
  1. ONIVYDE [Suspect]
     Active Substance: IRINOTECAN HYDROCHLORIDE
     Indication: Pancreatic carcinoma
     Route: 042
     Dates: start: 20250312, end: 20250819

REACTIONS (6)
  - Malaise [Unknown]
  - Fatigue [Unknown]
  - Asthenia [Unknown]
  - Abdominal discomfort [Unknown]
  - Diarrhoea [Unknown]
  - Hospice care [Unknown]

NARRATIVE: CASE EVENT DATE: 20250101
